FAERS Safety Report 8942596 (Version 2)
Quarter: 2012Q4

REPORT INFORMATION
  Report Type: 
  Country: US (occurrence: US)
  Receive Date: 20121204
  Receipt Date: 20121206
  Transmission Date: 20130627
  Serious: No
  Sender: FDA-Public Use
  Company Number: US-009507513-1212USA001075

PATIENT
  Age: 78 Year
  Sex: Male
  Weight: 71.66 kg

DRUGS (5)
  1. CLARITIN-D 12 HOUR [Suspect]
     Indication: COUGH
     Dosage: 5 mg, bid
     Route: 048
     Dates: start: 20120901, end: 20120910
  2. CLARITIN-D 12 HOUR [Suspect]
     Indication: HYPERSENSITIVITY
  3. LISINOPRIL [Concomitant]
     Indication: HYPERTENSION
     Dosage: 10 mg, bid
  4. ATORVASTATIN [Concomitant]
     Indication: BLOOD CHOLESTEROL INCREASED
     Dosage: 20 mg, bid
  5. AMIODARONE [Concomitant]
     Indication: ATRIAL FIBRILLATION
     Dosage: 200 mg, qd

REACTIONS (4)
  - Dizziness [Recovered/Resolved]
  - Urinary retention [Recovered/Resolved]
  - Therapeutic response unexpected [Recovered/Resolved]
  - Expired drug administered [Unknown]
